FAERS Safety Report 21793851 (Version 1)
Quarter: 2022Q4

REPORT INFORMATION
  Report Type: Report from Study
  Country: US (occurrence: US)
  Receive Date: 20221229
  Receipt Date: 20221229
  Transmission Date: 20230113
  Serious: No
  Sender: FDA-Public Use
  Company Number: US-ABBVIE-4218016

PATIENT
  Sex: Female

DRUGS (1)
  1. HUMIRA [Suspect]
     Active Substance: ADALIMUMAB
     Indication: Hidradenitis
     Dosage: STRENGHT:40MG, CITRATE FREE
     Route: 058

REACTIONS (5)
  - Ear discomfort [Not Recovered/Not Resolved]
  - Influenza [Recovering/Resolving]
  - Ear infection [Unknown]
  - Dizziness [Unknown]
  - Paranasal sinus discomfort [Recovering/Resolving]

NARRATIVE: CASE EVENT DATE: 20220101
